FAERS Safety Report 20658698 (Version 1)
Quarter: 2022Q1

REPORT INFORMATION
  Report Type: Report from Study
  Country: DE (occurrence: DE)
  Receive Date: 20220331
  Receipt Date: 20220331
  Transmission Date: 20220423
  Serious: Yes (Other)
  Sender: FDA-Public Use
  Company Number: DE-002147023-PHHY2018DE060628

PATIENT
  Sex: Female

DRUGS (8)
  1. LETROZOLE [Suspect]
     Active Substance: LETROZOLE
     Indication: Breast cancer metastatic
     Dosage: 2.5 MILLIGRAM, QD, 2.5 MG, QD
     Route: 065
     Dates: start: 20171216
  2. ACYCLOVIR [Suspect]
     Active Substance: ACYCLOVIR
     Indication: Herpes ophthalmic
     Dosage: 800 MILLIGRAM, Q4H, 800 MG, Q4H,5 TIMES DAILY
     Route: 048
     Dates: start: 20180312, end: 20180325
  3. KISQALI [Suspect]
     Active Substance: RIBOCICLIB
     Indication: Breast cancer metastatic
     Dosage: 600 MILLIGRAM, QD, QD(1-0-0) (REGIMEN 21 DAYS INTAKE, 21 DAYS PAUSE)/16-DEC-2017
     Route: 048
     Dates: end: 20180702
  4. KISQALI [Suspect]
     Active Substance: RIBOCICLIB
     Dosage: 400 MILLIGRAM, QD, 400 MG, QD/03-JUL-2018
     Route: 048
     Dates: end: 20190222
  5. KISQALI [Suspect]
     Active Substance: RIBOCICLIB
     Dosage: 400 MILLIGRAM, QD, 400 MG, QD/20-MAR-2019
     Route: 048
     Dates: end: 20190515
  6. KISQALI [Suspect]
     Active Substance: RIBOCICLIB
     Dosage: 200 MILLIGRAM, QD(REGIMEN 21 DAYS INTAKE, 21 DAYS PAUSE)/16-MAY-2019
     Route: 048
     Dates: end: 20201004
  7. KISQALI [Suspect]
     Active Substance: RIBOCICLIB
     Dosage: 200 MILLIGRAM, QD(QD/SWITCHING OF BREAKS BETWEEN 7 OR 12 DAYS RESPECTIVELY)/05-OCT-2020
     Route: 048
     Dates: end: 20201013
  8. KISQALI [Suspect]
     Active Substance: RIBOCICLIB
     Dosage: 200 MILLIGRAM, QD, 200 MG, QD (OTHER)/05-NOV-2020
     Route: 048

REACTIONS (3)
  - Herpes ophthalmic [Recovered/Resolved]
  - Transaminases increased [Recovered/Resolved]
  - Condition aggravated [Unknown]

NARRATIVE: CASE EVENT DATE: 20180312
